FAERS Safety Report 10475341 (Version 1)
Quarter: 2014Q3

REPORT INFORMATION
  Report Type: Spontaneous
  Country: US (occurrence: None)
  Receive Date: 20140924
  Receipt Date: 20140924
  Transmission Date: 20150326
  Serious: Yes (Hospitalization)
  Sender: FDA-Public Use
  Company Number: None

PATIENT
  Age: 78 Year
  Sex: Female
  Weight: 67.9 kg

DRUGS (22)
  1. HUMULIN NOS [Concomitant]
     Active Substance: INSULIN HUMAN
  2. ZINC [Concomitant]
     Active Substance: ZINC\ZINC CHLORIDE
  3. ASA [Concomitant]
     Active Substance: ASPIRIN
  4. MAG OX [Concomitant]
     Active Substance: MAGNESIUM OXIDE
  5. COREG [Concomitant]
     Active Substance: CARVEDILOL
  6. RAMEXA [Concomitant]
  7. TYLENOL [Concomitant]
     Active Substance: ACETAMINOPHEN
  8. RANEXA [Concomitant]
     Active Substance: RANOLAZINE
  9. ULTRACET [Concomitant]
     Active Substance: ACETAMINOPHEN\TRAMADOL HYDROCHLORIDE
  10. REMERON [Concomitant]
     Active Substance: MIRTAZAPINE
  11. DIGOXIN. [Suspect]
     Active Substance: DIGOXIN
     Indication: CARDIAC FAILURE CONGESTIVE
     Dosage: RECENT
     Route: 048
  12. JUMALOG [Concomitant]
  13. SIMVASTATIN. [Concomitant]
     Active Substance: SIMVASTATIN
  14. NTG [Concomitant]
     Active Substance: NITROGLYCERIN
  15. PERCOCET [Concomitant]
     Active Substance: ACETAMINOPHEN\OXYCODONE HYDROCHLORIDE
  16. MVI [Concomitant]
     Active Substance: VITAMINS
  17. LOSERTAN [Concomitant]
  18. FLUOXETINE [Concomitant]
     Active Substance: FLUOXETINE\FLUOXETINE HYDROCHLORIDE
  19. PROTONIX [Concomitant]
     Active Substance: PANTOPRAZOLE SODIUM
  20. MYLANTA [Concomitant]
     Active Substance: ALUMINUM HYDROXIDE\MAGNESIUM HYDROXIDE\SIMETHICONE
  21. REGLAN [Concomitant]
     Active Substance: METOCLOPRAMIDE HYDROCHLORIDE
  22. COLACE [Concomitant]
     Active Substance: DOCUSATE SODIUM

REACTIONS (6)
  - Vomiting [None]
  - Bradycardia [None]
  - Cardioactive drug level increased [None]
  - Toxicity to various agents [None]
  - Nausea [None]
  - Encephalopathy [None]

NARRATIVE: CASE EVENT DATE: 20140329
